FAERS Safety Report 16762823 (Version 3)
Quarter: 2019Q4

REPORT INFORMATION
  Report Type: Spontaneous
  Country: US (occurrence: US)
  Receive Date: 20190901
  Receipt Date: 20191128
  Transmission Date: 20200122
  Serious: Yes (Other)
  Sender: FDA-Public Use
  Company Number: US-009507513-1908USA009072

PATIENT
  Age: 28 Year
  Sex: Female
  Weight: 70.75 kg

DRUGS (4)
  1. NEXPLANON [Suspect]
     Active Substance: ETONOGESTREL
     Indication: CONTRACEPTION
     Dosage: UNK, EVERY 3 YEARS
     Route: 058
     Dates: start: 20190606, end: 20190827
  2. ZOLOFT [Concomitant]
     Active Substance: SERTRALINE HYDROCHLORIDE
  3. TRAZODONE HYDROCHLORIDE. [Concomitant]
     Active Substance: TRAZODONE HYDROCHLORIDE
  4. PLAN B [Concomitant]
     Active Substance: LEVONORGESTREL
     Dosage: UNK; TWICE AT NIGHT
     Dates: start: 2019

REACTIONS (7)
  - Abortion spontaneous [Unknown]
  - Pregnancy with implant contraceptive [Recovered/Resolved]
  - Psychogenic seizure [Unknown]
  - Unintended pregnancy [Recovered/Resolved]
  - Fall [Unknown]
  - Joint injury [Recovering/Resolving]
  - Human chorionic gonadotropin decreased [Unknown]

NARRATIVE: CASE EVENT DATE: 20190801
